FAERS Safety Report 6707463-7 (Version None)
Quarter: 2010Q2

REPORT INFORMATION
  Report Type: 
  Country: None (occurrence: None)
  Receive Date: 20100503
  Receipt Date: 20090601
  Transmission Date: 20101027
  Serious: No
  Sender: FDA-Public Use
  Company Number: US-ASTRAZENECA-2009UW11408

PATIENT
  Age: 55 Year
  Sex: Male
  Weight: 68 kg

DRUGS (4)
  1. NEXIUM [Suspect]
     Indication: GASTROOESOPHAGEAL REFLUX DISEASE
     Route: 048
  2. LORAZEPAM [Concomitant]
  3. HYDROCODONE BITARTRATE [Concomitant]
  4. ZYRTEC [Concomitant]

REACTIONS (3)
  - CONDITION AGGRAVATED [None]
  - DYSGEUSIA [None]
  - GASTRITIS [None]
